FAERS Safety Report 9207715 (Version 1)
Quarter: 2013Q2

REPORT INFORMATION
  Report Type: Spontaneous
  Country: US (occurrence: US)
  Receive Date: 20130403
  Receipt Date: 20130403
  Transmission Date: 20140414
  Serious: Yes (Other)
  Sender: FDA-Public Use
  Company Number: US-PFIZER INC-2013102030

PATIENT
  Age: 4 Month
  Sex: 0

DRUGS (1)
  1. CHLOROMYCETIN [Suspect]
     Dosage: 4 G, 4X/DAY
     Route: 042

REACTIONS (5)
  - Accidental overdose [Recovered/Resolved]
  - Drug label confusion [Recovered/Resolved]
  - Unresponsive to stimuli [Recovered/Resolved]
  - Hypothermia [Recovered/Resolved]
  - Abdominal distension [Recovered/Resolved]
